FAERS Safety Report 11231330 (Version 1)
Quarter: 2015Q2

REPORT INFORMATION
  Report Type: Spontaneous
  Country: US (occurrence: None)
  Receive Date: 20150629
  Receipt Date: 20150629
  Transmission Date: 20150821
  Serious: Yes (Disabling)
  Sender: FDA-Public Use
  Company Number: None

PATIENT
  Age: 42 Year
  Sex: Male
  Weight: 99.79 kg

DRUGS (14)
  1. ERYTHROMYCIN. [Concomitant]
     Active Substance: ERYTHROMYCIN
  2. SAPHRIS [Concomitant]
     Active Substance: ASENAPINE MALEATE
  3. OMERPRAZOLE [Concomitant]
  4. VITAMIN C [Concomitant]
     Active Substance: ASCORBIC ACID
  5. BENZOYL PEROXIDE. [Concomitant]
     Active Substance: BENZOYL PEROXIDE
  6. LAMOTRIGINE 200MG TEVA/GLAXOSMITHKLINE [Suspect]
     Active Substance: LAMOTRIGINE
     Indication: BIPOLAR DISORDER
     Dosage: 1 PILL
     Route: 048
     Dates: start: 20080601, end: 20150601
  7. QUETIAPINE 200 MG LUPIN [Suspect]
     Active Substance: QUETIAPINE
     Indication: BIPOLAR DISORDER
     Dosage: 1 PILL
     Route: 048
     Dates: start: 20090801, end: 20140601
  8. CALMOSEPTINE [Concomitant]
     Active Substance: MENTHOL\ZINC OXIDE
  9. FISH OIL [Concomitant]
     Active Substance: FISH OIL
  10. MULTIVITAMIN [Concomitant]
     Active Substance: VITAMINS
  11. MAGNESIUM CITRATE. [Concomitant]
     Active Substance: MAGNESIUM CITRATE
  12. CALCIUM/MAGNESIUM/ZINC/D3 MULTIVITAMIN [Concomitant]
  13. CLOBETASOL [Concomitant]
     Active Substance: CLOBETASOL
  14. SALICYLIC ACID. [Concomitant]
     Active Substance: SALICYLIC ACID

REACTIONS (11)
  - Condition aggravated [None]
  - Dysstasia [None]
  - Myalgia [None]
  - Attention deficit/hyperactivity disorder [None]
  - Sensory loss [None]
  - Neuropathy peripheral [None]
  - Somnolence [None]
  - Muscular weakness [None]
  - Neuralgia [None]
  - Adverse drug reaction [None]
  - Goitre [None]

NARRATIVE: CASE EVENT DATE: 20140602
